FAERS Safety Report 21432640 (Version 1)
Quarter: 2022Q4

REPORT INFORMATION
  Report Type: Report from Study
  Country: CA (occurrence: CA)
  Receive Date: 20221010
  Receipt Date: 20221010
  Transmission Date: 20230112
  Serious: Yes (Other)
  Sender: FDA-Public Use
  Company Number: CA-ABBVIE-4141619

PATIENT
  Sex: Female

DRUGS (1)
  1. RINVOQ [Suspect]
     Active Substance: UPADACITINIB
     Indication: Rheumatoid arthritis
     Route: 048
     Dates: start: 20220626

REACTIONS (10)
  - Surgery [Unknown]
  - Grip strength decreased [Unknown]
  - Fall [Unknown]
  - Inflammation [Unknown]
  - COVID-19 [Unknown]
  - COVID-19 [Recovered/Resolved]
  - Impaired self-care [Unknown]
  - Weight increased [Unknown]
  - Limb injury [Unknown]
  - Pain in extremity [Unknown]

NARRATIVE: CASE EVENT DATE: 20220101
